FAERS Safety Report 6084732-8 (Version None)
Quarter: 2009Q1

REPORT INFORMATION
  Report Type: 
  Country: None (occurrence: None)
  Receive Date: 20090217
  Receipt Date: 20090109
  Transmission Date: 20090719
  Serious: Yes (Hospitalization)
  Sender: FDA-Public Use
  Company Number: 000163

PATIENT
  Sex: Female

DRUGS (7)
  1. LACOSAMIDE [Suspect]
     Indication: PARTIAL SEIZURES
     Dosage: (DOSE PROGRESSIVELY INCREASED TO 300 MG DAILY ORAL), (50 MG BID ORAL)
     Route: 048
     Dates: start: 20081106
  2. LACOSAMIDE [Suspect]
     Indication: PARTIAL SEIZURES
     Dosage: (DOSE PROGRESSIVELY INCREASED TO 300 MG DAILY ORAL), (50 MG BID ORAL)
     Route: 048
     Dates: start: 20090109
  3. LAMICTAL [Concomitant]
  4. LYRICA [Concomitant]
  5. TRILEPTAL [Concomitant]
  6. RIVOTRIL [Concomitant]
  7. VISKEN [Concomitant]

REACTIONS (3)
  - CONVULSION [None]
  - INFLUENZA [None]
  - LYMPHOPENIA [None]
